FAERS Safety Report 8045324-4 (Version None)
Quarter: 2012Q1

REPORT INFORMATION
  Report Type: 
  Country: None (occurrence: None)
  Receive Date: 20120111
  Receipt Date: 20120111
  Transmission Date: 20120608
  Serious: Yes (Life-Threatening, Hospitalization)
  Sender: FDA-Public Use
  Company Number: None

PATIENT
  Age: 7 Year
  Sex: Female
  Weight: 24 kg

DRUGS (4)
  1. ZYRTEC [Concomitant]
  2. SINGULAIR [Concomitant]
  3. PREDNISONE [Concomitant]
  4. DAPSONE [Suspect]
     Indication: PEMPHIGUS
     Dosage: 25-50 MG TWICE DAILY ORAL
     Route: 048
     Dates: start: 20110908, end: 20110921

REACTIONS (4)
  - RESPIRATORY DISTRESS [None]
  - ASTHMA [None]
  - METHAEMOGLOBINAEMIA [None]
  - NO THERAPEUTIC RESPONSE [None]
